FAERS Safety Report 6088927-9 (Version None)
Quarter: 2009Q1

REPORT INFORMATION
  Report Type: 
  Country: None (occurrence: None)
  Receive Date: 20090224
  Receipt Date: 20090220
  Transmission Date: 20090719
  Serious: Yes (Hospitalization)
  Sender: FDA-Public Use
  Company Number: US-RB-005028-08

PATIENT
  Age: 32 Year
  Sex: Female

DRUGS (2)
  1. SUBOXONE [Suspect]
     Route: 060
     Dates: start: 20080901, end: 20081001
  2. ANTIDEPRESSANT [Concomitant]
     Indication: DEPRESSION
     Dosage: DOSING INFORMATION UNKNOWN.
     Route: 065

REACTIONS (2)
  - DEEP VEIN THROMBOSIS [None]
  - PITTING OEDEMA [None]
